FAERS Safety Report 20774830 (Version 1)
Quarter: 2022Q2

REPORT INFORMATION
  Report Type: Spontaneous
  Country: US (occurrence: None)
  Receive Date: 20220501
  Receipt Date: 20220501
  Transmission Date: 20220721
  Serious: Yes (Death, Life-Threatening, Hospitalization)
  Sender: FDA-Public Use
  Company Number: None

PATIENT
  Age: 35 Year
  Sex: Female

DRUGS (22)
  1. ROCURONIUM [Suspect]
     Active Substance: ROCURONIUM BROMIDE
     Indication: Anaesthesia
     Dosage: FREQUENCY : AS NEEDED;?
     Route: 042
     Dates: start: 20211022, end: 20211024
  2. Acetaminophen 1000mg tablet [Concomitant]
  3. Acetaminophen 650mg oral liquid [Concomitant]
  4. Albumin 25% 50g bottle [Concomitant]
  5. Bisacodyl 10mg suppository [Concomitant]
  6. Calcium chloride 10% 1g injection [Concomitant]
  7. Calcium gluconate 2g IVPB [Concomitant]
  8. Cefepime 2g IV [Concomitant]
  9. Clindamycin 900mg IVPB [Concomitant]
  10. NOVOSEVEN [Concomitant]
     Active Substance: COAGULATION FACTOR VIIA RECOMBINANT HUMAN
  11. Desmopressin 30mcg injection [Concomitant]
  12. Diphenhydramine 25mg injection [Concomitant]
  13. Ephedrine 5mg injection [Concomitant]
  14. Epoprostenol 1500mcg nebulization [Concomitant]
  15. Famotidine 20mg injection [Concomitant]
  16. Fentanyl IV (various doses) [Concomitant]
  17. Furosemide 20mg injection [Concomitant]
  18. Gentamicin 350mg IVPB [Concomitant]
  19. Haloperidol 5mg injection [Concomitant]
  20. Hydromorphone 0.5mg injection [Concomitant]
  21. INSULIN ASPART [Concomitant]
     Active Substance: INSULIN ASPART
  22. INSULIN NOS [Concomitant]
     Active Substance: INSULIN NOS

REACTIONS (11)
  - Drug hypersensitivity [None]
  - Thrombocytopenia [None]
  - Lactic acidosis [None]
  - Hypoglycaemia [None]
  - Renal impairment [None]
  - Blood loss anaemia [None]
  - Transfusion reaction [None]
  - Disseminated intravascular coagulation [None]
  - Hepatic function abnormal [None]
  - Acute respiratory distress syndrome [None]
  - Caesarean section [None]

NARRATIVE: CASE EVENT DATE: 20211025
